FAERS Safety Report 17608375 (Version 1)
Quarter: 2020Q1

REPORT INFORMATION
  Report Type: Report from Study
  Country: AR (occurrence: AR)
  Receive Date: 20200331
  Receipt Date: 20200331
  Transmission Date: 20200409
  Serious: Yes (Death)
  Sender: FDA-Public Use
  Company Number: AR-ASTRAZENECA-2020SE43972

PATIENT
  Age: 26041 Day
  Sex: Female

DRUGS (1)
  1. TAGRISSO [Suspect]
     Active Substance: OSIMERTINIB
     Indication: LUNG NEOPLASM MALIGNANT
     Dosage: 80.0MG UNKNOWN
     Route: 048
     Dates: start: 20180322

REACTIONS (1)
  - Malignant neoplasm progression [Fatal]

NARRATIVE: CASE EVENT DATE: 20200316
